FAERS Safety Report 10562364 (Version 3)
Quarter: 2014Q4

REPORT INFORMATION
  Report Type: Report from Study
  Country: FI (occurrence: FI)
  Receive Date: 20141104
  Receipt Date: 20141121
  Transmission Date: 20150529
  Serious: Yes (Hospitalization, Other)
  Sender: FDA-Public Use
  Company Number: PHHY2014FI142481

PATIENT
  Age: 40 Year
  Sex: Female

DRUGS (4)
  1. LEPONEX [Suspect]
     Active Substance: CLOZAPINE
     Dosage: 500 MG
     Route: 065
  2. RISPERDAL [Concomitant]
     Active Substance: RISPERIDONE
     Indication: SCHIZOPHRENIA
     Dosage: UNK
     Route: 065
     Dates: start: 2012
  3. LEPONEX [Suspect]
     Active Substance: CLOZAPINE
     Dosage: 600 MG
     Route: 065
     Dates: end: 20141030
  4. LEPONEX [Suspect]
     Active Substance: CLOZAPINE
     Indication: SCHIZOPHRENIA
     Dosage: UNK
     Route: 065
     Dates: start: 2011

REACTIONS (8)
  - Epilepsy [Unknown]
  - Confusional state [Unknown]
  - White blood cell count decreased [Recovered/Resolved]
  - Viral infection [Recovered/Resolved]
  - Granulocytes abnormal [Recovered/Resolved]
  - Mental impairment [Unknown]
  - Neutropenia [Recovered/Resolved]
  - Drug ineffective [Unknown]

NARRATIVE: CASE EVENT DATE: 2014
